FAERS Safety Report 15473903 (Version 1)
Quarter: 2018Q4

REPORT INFORMATION
  Report Type: Spontaneous
  Country: US (occurrence: US)
  Receive Date: 20181008
  Receipt Date: 20181008
  Transmission Date: 20190205
  Serious: No
  Sender: FDA-Public Use
  Company Number: US-BAYER-2018-185844

PATIENT
  Age: 48 Year
  Sex: Female

DRUGS (3)
  1. MIRENA [Suspect]
     Active Substance: LEVONORGESTREL
     Indication: GENITAL HAEMORRHAGE
  2. VITAMINS NOS [Concomitant]
     Active Substance: VITAMINS
  3. MIRENA [Suspect]
     Active Substance: LEVONORGESTREL
     Indication: CONTRACEPTION
     Dosage: 20 MCG/24HR, CONT
     Route: 015
     Dates: start: 20171201

REACTIONS (3)
  - Abdominal pain [Not Recovered/Not Resolved]
  - Alopecia [Not Recovered/Not Resolved]
  - Bacterial infection [Not Recovered/Not Resolved]

NARRATIVE: CASE EVENT DATE: 20171201
